FAERS Safety Report 10830357 (Version 6)
Quarter: 2015Q2

REPORT INFORMATION
  Report Type: Spontaneous
  Country: CA (occurrence: CA)
  Receive Date: 20150219
  Receipt Date: 20150407
  Transmission Date: 20150821
  Serious: Yes (Hospitalization, Other)
  Sender: FDA-Public Use
  Company Number: CA-GLAXOSMITHKLINE-A1075530A

PATIENT
  Age: 36 Year
  Sex: Female
  Weight: 48 kg

DRUGS (7)
  1. BENLYSTA [Suspect]
     Active Substance: BELIMUMAB
     Dosage: UNK
     Dates: start: 20150127
  2. BENLYSTA [Suspect]
     Active Substance: BELIMUMAB
     Dosage: 460 MG, UNK
     Route: 042
     Dates: start: 20140515
  3. BENLYSTA [Suspect]
     Active Substance: BELIMUMAB
     Dosage: 480 MG, UNK
  4. PEROXIDE [Concomitant]
     Active Substance: HYDROGEN PEROXIDE
     Indication: HYPERCHLORHYDRIA
     Dosage: UNK
  5. BENLYSTA [Suspect]
     Active Substance: BELIMUMAB
     Indication: SYSTEMIC LUPUS ERYTHEMATOSUS
     Dosage: AT WEEK 0, 2, 4 AND THEN EVERY 4 WEEKS
     Route: 042
     Dates: start: 20140515
  6. BENLYSTA [Suspect]
     Active Substance: BELIMUMAB
     Dosage: 480 MG, UNK
     Route: 042
  7. BENLYSTA [Suspect]
     Active Substance: BELIMUMAB
     Dosage: 480 MG, UNK
     Dates: start: 201403

REACTIONS (9)
  - Malaise [Not Recovered/Not Resolved]
  - General physical health deterioration [Not Recovered/Not Resolved]
  - Wrong drug administered [Recovered/Resolved]
  - Drug ineffective [Recovered/Resolved]
  - Anxiety [Recovered/Resolved]
  - Feeling abnormal [Not Recovered/Not Resolved]
  - Feeling abnormal [Unknown]
  - Polyarthritis [Unknown]
  - Nightmare [Recovered/Resolved]

NARRATIVE: CASE EVENT DATE: 20140529
